FAERS Safety Report 5370058-4 (Version None)
Quarter: 2007Q2

REPORT INFORMATION
  Report Type: 
  Country: None (occurrence: None)
  Receive Date: 20070613
  Receipt Date: 20060808
  Transmission Date: 20071010
  Serious: Yes (Other)
  Sender: FDA-Public Use
  Company Number: WAES 0406USA01321

PATIENT
  Age: 81 Year
  Sex: Female

DRUGS (3)
  1. COSOPT [Suspect]
     Indication: GLAUCOMA
     Dosage: 4 DROPS DAILY OPHT
     Route: 047
  2. ALPHAGAN [Concomitant]
  3. XALATAN [Concomitant]

REACTIONS (3)
  - BACK PAIN [None]
  - EYE DISCHARGE [None]
  - EYELID MARGIN CRUSTING [None]
